FAERS Safety Report 7576547-6 (Version None)
Quarter: 2011Q2

REPORT INFORMATION
  Report Type: 
  Country: None (occurrence: None)
  Receive Date: 20110624
  Receipt Date: 20110624
  Transmission Date: 20111010
  Serious: Yes (Other)
  Sender: FDA-Public Use
  Company Number: None

PATIENT
  Age: 23 Year
  Sex: Female
  Weight: 49.9 kg

DRUGS (2)
  1. CHIA  OIL [Concomitant]
  2. SIMPONI [Suspect]
     Indication: RHEUMATOID ARTHRITIS
     Dosage: 60MG ONCE A MONTH SUBCUTANEOUSLY
     Route: 058
     Dates: start: 20110503, end: 20110527

REACTIONS (1)
  - RASH PAPULAR [None]
